FAERS Safety Report 22131110 (Version 1)
Quarter: 2023Q1

REPORT INFORMATION
  Report Type: Spontaneous
  Country: US (occurrence: US)
  Receive Date: 20230323
  Receipt Date: 20230323
  Transmission Date: 20230417
  Serious: No
  Sender: FDA-Public Use
  Company Number: US-PFIZER INC-202300124779

PATIENT
  Age: 68 Year
  Sex: Female

DRUGS (2)
  1. BOSULIF [Suspect]
     Active Substance: BOSUTINIB MONOHYDRATE
     Dosage: 100 MG, 2X/DAY (100 MG, 2 TABLETS (200 MG) DAILY)
     Route: 048
     Dates: start: 20230317
  2. SPRYCEL [Concomitant]
     Active Substance: DASATINIB
     Dosage: 100 MG, DAILY (100MG ORAL,TAKE 1 TABLET DAILY)
     Route: 048
     Dates: start: 20210625

REACTIONS (2)
  - Asthenia [Not Recovered/Not Resolved]
  - Headache [Not Recovered/Not Resolved]

NARRATIVE: CASE EVENT DATE: 20230317
